FAERS Safety Report 22016162 (Version 1)
Quarter: 2023Q1

REPORT INFORMATION
  Report Type: Spontaneous
  Country: FR (occurrence: FR)
  Receive Date: 20230221
  Receipt Date: 20230221
  Transmission Date: 20230418
  Serious: Yes (Hospitalization, Other)
  Sender: FDA-Public Use
  Company Number: FR-BAYER-2021-170025

PATIENT
  Age: 43 Year
  Sex: Female

DRUGS (16)
  1. DIANE (CYPROTERONE ACETATE\ETHINYL ESTRADIOL) [Suspect]
     Active Substance: CYPROTERONE ACETATE\ETHINYL ESTRADIOL
     Indication: Contraception
     Dosage: UNK
     Route: 048
     Dates: start: 1991, end: 20131204
  2. CYPROTERONE ACETATE [Suspect]
     Active Substance: CYPROTERONE ACETATE
     Indication: Acne
     Dosage: TABLET PER DAY, 21 DAYS PER MONTHS
     Route: 048
     Dates: start: 20130704, end: 20161207
  3. CYPROTERONE ACETATE [Suspect]
     Active Substance: CYPROTERONE ACETATE
     Indication: Contraception
     Dosage: 1 TABLET PER DAY, 20 DAYS PER MONTHS
     Route: 048
     Dates: start: 20161207, end: 20190720
  4. CYPROTERONE ACETATE [Suspect]
     Active Substance: CYPROTERONE ACETATE
     Indication: Acne
     Dosage: HALF A TABLET OF 50MG, ONCE DAILY, 20 DAYS PER MONTH
     Route: 048
  5. MIRENA [Suspect]
     Active Substance: LEVONORGESTREL
     Dosage: 20?G/DAY
     Route: 015
     Dates: start: 200412, end: 200501
  6. CYPROTERONE ACETATE [Suspect]
     Active Substance: CYPROTERONE ACETATE
     Route: 048
  7. CYPROTERONE ACETATE\ETHINYL ESTRADIOL [Suspect]
     Active Substance: CYPROTERONE ACETATE\ETHINYL ESTRADIOL
     Dosage: UNK
     Route: 048
     Dates: start: 200510
  8. ESTRADIOL [Concomitant]
     Active Substance: ESTRADIOL
     Dosage: UNK
     Route: 048
     Dates: start: 20130704
  9. ESTRIOL [Concomitant]
     Active Substance: ESTRIOL
     Dosage: 1 CAPSULE PER DAY DURING 2 WEEKS AND THEN 2 CAPSULES PER WEEK
  10. RACECADOTRIL [Concomitant]
     Active Substance: RACECADOTRIL
     Indication: Diarrhoea
     Dosage: 100MG TID
     Dates: start: 20190917
  11. DICLOFENAC [Concomitant]
     Active Substance: DICLOFENAC
     Indication: Pain
  12. OMEPRAZOLE [Concomitant]
     Active Substance: OMEPRAZOLE
  13. EBASTINE [Concomitant]
     Active Substance: EBASTINE
  14. PREDNISOLONE [Concomitant]
     Active Substance: PREDNISOLONE
     Indication: Sinusitis
  15. CETIRIZINE [Concomitant]
     Active Substance: CETIRIZINE HYDROCHLORIDE
  16. CHLORMADINONE ACETATE [Concomitant]
     Active Substance: CHLORMADINONE ACETATE
     Dosage: 5 MG, QD
     Route: 048
     Dates: start: 20161207, end: 20170724

REACTIONS (26)
  - Meningioma [Recovered/Resolved]
  - Hypoacusis [Recovering/Resolving]
  - Chronic sinusitis [None]
  - Paranasal sinus mucosal hypertrophy [None]
  - Pharyngitis [None]
  - Rhinitis allergic [None]
  - Headache [None]
  - Anosmia [None]
  - Visual impairment [None]
  - Asthenia [None]
  - Weight increased [None]
  - Nausea [None]
  - Pyrexia [None]
  - Limb injury [None]
  - Tendonitis [None]
  - Abdominal distension [None]
  - Diarrhoea [None]
  - Vaginal discharge [None]
  - Keratitis [None]
  - Migraine [None]
  - Visual acuity reduced [None]
  - Fatigue [None]
  - Cognitive disorder [None]
  - Disturbance in attention [None]
  - Disturbance in attention [None]
  - Vaginal discharge [None]

NARRATIVE: CASE EVENT DATE: 20150101
